FAERS Safety Report 10172905 (Version 1)
Quarter: 2014Q2

REPORT INFORMATION
  Report Type: Spontaneous
  Country: US (occurrence: US)
  Receive Date: 20140515
  Receipt Date: 20140515
  Transmission Date: 20141212
  Serious: Yes (Death, Other)
  Sender: FDA-Public Use
  Company Number: US-JNJFOC-20140500740

PATIENT
  Sex: 0

DRUGS (4)
  1. LEVOFLOXACIN [Suspect]
     Indication: PRODUCT USED FOR UNKNOWN INDICATION
     Route: 065
  2. WARFARIN [Interacting]
     Indication: EMBOLISM VENOUS
     Route: 065
  3. WARFARIN [Interacting]
     Indication: CARDIAC VALVE PROSTHESIS USER
     Route: 065
  4. WARFARIN [Interacting]
     Indication: ATRIAL FIBRILLATION
     Route: 065

REACTIONS (4)
  - Death [Fatal]
  - Drug interaction [Unknown]
  - Haemorrhage [Unknown]
  - Embolism [Unknown]
